FAERS Safety Report 5533514-1 (Version None)
Quarter: 2007Q4

REPORT INFORMATION
  Report Type: 
  Country: None (occurrence: None)
  Receive Date: 20071204
  Receipt Date: 20071129
  Transmission Date: 20080405
  Serious: No
  Sender: FDA-Public Use
  Company Number: FR-ELI_LILLY_AND_COMPANY-FR200711003133

PATIENT
  Age: 76 Year
  Sex: Female
  Weight: 53 kg

DRUGS (11)
  1. FORTEO [Suspect]
     Indication: OSTEOPOROSIS
     Dosage: 20 UG, DAILY (1/D)
     Route: 058
     Dates: start: 20070319, end: 20071028
  2. LANSOPRAZOLE [Concomitant]
  3. TORENTAL [Concomitant]
  4. NITRODERM [Concomitant]
  5. LOSARTAN POTASSIUM AND HYDROCHLOROTHIAZIDE [Concomitant]
  6. CHRONADALATE [Concomitant]
  7. FENOFIBRATE [Concomitant]
  8. FLECAINIDE ACETATE [Concomitant]
  9. PLAVIX [Concomitant]
  10. ACETAMINOPHEN AND TRAMADOL HCL [Concomitant]
  11. MOTILIUM [Concomitant]

REACTIONS (6)
  - ABDOMINAL PAIN [None]
  - ASTHENIA [None]
  - NAUSEA [None]
  - PARAESTHESIA [None]
  - VOMITING [None]
  - WEIGHT DECREASED [None]
